FAERS Safety Report 15822599 (Version 2)
Quarter: 2019Q1

REPORT INFORMATION
  Report Type: Report from Study
  Country: US (occurrence: US)
  Receive Date: 20190114
  Receipt Date: 20190326
  Transmission Date: 20190417
  Serious: Yes (Hospitalization, Disabling, Other)
  Sender: FDA-Public Use
  Company Number: US-SA-2019SA006837

PATIENT
  Age: 57 Year
  Sex: Male

DRUGS (3)
  1. INSULIN GLARGINE [Suspect]
     Active Substance: INSULIN GLARGINE
     Dosage: 53 UNITS IN EVENING AND 35 UNITS IN THE MORNING
  2. INSULIN GLARGINE [Suspect]
     Active Substance: INSULIN GLARGINE
     Indication: DIABETES MELLITUS
     Dosage: 50 UNITS AT NIGHT AND 35 UNITS IN THE MORNING
  3. NOVOLOG [Concomitant]
     Active Substance: INSULIN ASPART

REACTIONS (17)
  - Agraphia [Not Recovered/Not Resolved]
  - Speech disorder [Not Recovered/Not Resolved]
  - Cerebrovascular accident [Recovered/Resolved]
  - Cerebrovascular accident [Recovered/Resolved]
  - Disability [Not Recovered/Not Resolved]
  - Product dose omission [Unknown]
  - Cerebral vascular occlusion [Not Recovered/Not Resolved]
  - Product use issue [Unknown]
  - Ocular hyperaemia [Recovered/Resolved]
  - Haemorrhagic stroke [Unknown]
  - Blood pressure increased [Recovered/Resolved]
  - Complication associated with device [Unknown]
  - Respiratory arrest [Recovered/Resolved]
  - Impaired work ability [Not Recovered/Not Resolved]
  - Respiratory arrest [Recovered/Resolved]
  - Disorientation [Recovered/Resolved]
  - Reading disorder [Not Recovered/Not Resolved]

NARRATIVE: CASE EVENT DATE: 2009
